FAERS Safety Report 8451593-9 (Version None)
Quarter: 2012Q2

REPORT INFORMATION
  Report Type: 
  Country: None (occurrence: None)
  Receive Date: 20120620
  Receipt Date: 20120511
  Transmission Date: 20120825
  Serious: No
  Sender: FDA-Public Use
  Company Number: US-VERTEX PHARMACEUTICALS INC.-AE-2012-003374

PATIENT
  Sex: Male
  Weight: 90.8 kg

DRUGS (5)
  1. INCIVEK [Suspect]
     Indication: HEPATITIS C
     Route: 048
     Dates: start: 20120228
  2. BENACARD [Concomitant]
     Indication: HYPERTENSION
  3. RIBAVIRIN [Concomitant]
     Indication: HEPATITIS C
     Dates: start: 20120228
  4. PAXIL [Concomitant]
     Indication: DEPRESSION
  5. PEGASYS [Concomitant]
     Indication: HEPATITIS C
     Route: 058
     Dates: start: 20120228

REACTIONS (3)
  - ABNORMAL FAECES [None]
  - ANORECTAL DISCOMFORT [None]
  - DIARRHOEA [None]
